FAERS Safety Report 9346562 (Version 1)
Quarter: 2013Q2

REPORT INFORMATION
  Report Type: Spontaneous
  Country: US (occurrence: US)
  Receive Date: 20130613
  Receipt Date: 20130613
  Transmission Date: 20140414
  Serious: Yes (Other)
  Sender: FDA-Public Use
  Company Number: US-BAYER-2013-071571

PATIENT
  Age: 31 Year
  Sex: Female
  Weight: 89.34 kg

DRUGS (3)
  1. YASMIN [Suspect]
  2. OCELLA [Suspect]
  3. MUCINEX [Concomitant]
     Dosage: 600 MG, TAKES OCCASIONALLY
     Route: 048

REACTIONS (1)
  - Deep vein thrombosis [Recovered/Resolved]
